FAERS Safety Report 23555728 (Version 1)
Quarter: 2024Q1

REPORT INFORMATION
  Report Type: Spontaneous
  Country: US (occurrence: US)
  Receive Date: 20240222
  Receipt Date: 20240222
  Transmission Date: 20240410
  Serious: No
  Sender: FDA-Public Use
  Company Number: US-NOVOPROD-1040437

PATIENT
  Sex: Female

DRUGS (1)
  1. VICTOZA [Suspect]
     Active Substance: LIRAGLUTIDE
     Indication: Type 2 diabetes mellitus
     Dosage: TWO INJECTIONS TO MAKE UP 3.0
     Route: 058
     Dates: start: 202211

REACTIONS (3)
  - Adverse drug reaction [Unknown]
  - Constipation [Not Recovered/Not Resolved]
  - Off label use [Unknown]
